FAERS Safety Report 5208772-3 (Version None)
Quarter: 2007Q1

REPORT INFORMATION
  Report Type: 
  Country: None (occurrence: None)
  Receive Date: 20070111
  Receipt Date: 20070111
  Transmission Date: 20070707
  Serious: No
  Sender: FDA-Public Use
  Company Number: None

PATIENT
  Sex: Female
  Weight: 49.8957 kg

DRUGS (1)
  1. LEVAQUIN [Suspect]
     Indication: PNEUMONIA
     Dosage: 500 MG DAILY PO
     Route: 048
     Dates: start: 20061224, end: 20070106

REACTIONS (4)
  - ARTHRALGIA [None]
  - ARTHROPOD BITE [None]
  - PAIN IN EXTREMITY [None]
  - RASH PRURITIC [None]
